FAERS Safety Report 5482087-0 (Version None)
Quarter: 2007Q4

REPORT INFORMATION
  Report Type: 
  Country: None (occurrence: None)
  Receive Date: 20071011
  Receipt Date: 20071005
  Transmission Date: 20080405
  Serious: Yes (Other)
  Sender: FDA-Public Use
  Company Number: PHEH2007US07309

PATIENT
  Age: 44 Year
  Sex: Male

DRUGS (1)
  1. ZELNORM [Suspect]
     Indication: CONSTIPATION
     Dosage: 6 MG, BID
     Route: 048
     Dates: start: 20050401, end: 20070509

REACTIONS (8)
  - BALANCE DISORDER [None]
  - CEREBROVASCULAR ACCIDENT [None]
  - CHEST PAIN [None]
  - COORDINATION ABNORMAL [None]
  - HEART VALVE INCOMPETENCE [None]
  - HEMIPLEGIA [None]
  - HYPERTENSION [None]
  - HYPOAESTHESIA [None]
